FAERS Safety Report 9343665 (Version 2)
Quarter: 2013Q2

REPORT INFORMATION
  Report Type: Spontaneous
  Country: GB (occurrence: None)
  Receive Date: 20130610
  Receipt Date: 20130613
  Transmission Date: 20140414
  Serious: Yes (Life-Threatening, Hospitalization, Other)
  Sender: FDA-Public Use
  Company Number: AUR-APL-2013-04682

PATIENT
  Age: 72 Year
  Sex: Male

DRUGS (8)
  1. CLOPIDOGREL [Suspect]
     Indication: PROPHYLAXIS
     Route: 048
  2. CLOPIDOGREL [Suspect]
     Indication: MYOCARDIAL INFARCTION
     Route: 048
  3. ACETYLSALICYLIC ACID [Suspect]
     Indication: PROPHYLAXIS
     Route: 048
     Dates: start: 201206, end: 20120717
  4. ATORVASTATIN (ATORVASTATIN) [Concomitant]
  5. BISOPROLOL (BISOPROLOL) [Concomitant]
  6. FUROSEMIDE (FUROSEMIDE) [Concomitant]
  7. GLYCERYL TRINITRATE (GLYCERYL TRINITRATE) [Concomitant]
  8. PERINDOPRIL (PERINDOPRIL) [Concomitant]

REACTIONS (9)
  - Iron deficiency anaemia [None]
  - Blood urea increased [None]
  - Gastrooesophageal reflux disease [None]
  - Gastrointestinal telangiectasia [None]
  - Haemangioma [None]
  - Diverticulum intestinal [None]
  - Large intestinal stenosis [None]
  - Large intestine polyp [None]
  - Faeces discoloured [None]
